FAERS Safety Report 4447847-3 (Version None)
Quarter: 2004Q3

REPORT INFORMATION
  Report Type: 
  Country: None (occurrence: None)
  Receive Date: 20040812
  Receipt Date: 20040602
  Transmission Date: 20050211
  Serious: No
  Sender: FDA-Public Use
  Company Number: USA040568786

PATIENT
  Age: 62 Year
  Sex: Male

DRUGS (3)
  1. CIALIS [Suspect]
     Dosage: 10 MG AS NEEDED
     Dates: start: 20040101
  2. VITAMIN E [Concomitant]
  3. MULTI-VITAMINS [Concomitant]

REACTIONS (2)
  - BLOOD PRESSURE DECREASED [None]
  - DIZZINESS [None]
